FAERS Safety Report 24076692 (Version 2)
Quarter: 2024Q3

REPORT INFORMATION
  Report Type: Spontaneous
  Country: GB (occurrence: GB)
  Receive Date: 20240711
  Receipt Date: 20240722
  Transmission Date: 20241017
  Serious: Yes (Death, Hospitalization, Other)
  Sender: SANOFI AVENTIS
  Company Number: GB-SA-SAC20240710000040

PATIENT
  Age: 69 Year
  Sex: Female
  Weight: 50 kg

DRUGS (1)
  1. BELUMOSUDIL MESYLATE [Suspect]
     Active Substance: BELUMOSUDIL MESYLATE
     Dosage: 200 MG, QD
     Route: 065
     Dates: start: 20240222, end: 20240412

REACTIONS (3)
  - Renal failure [Fatal]
  - Blood creatinine increased [Unknown]
  - Hypertension [Unknown]

NARRATIVE: CASE EVENT DATE: 20240425
